FAERS Safety Report 19001077 (Version 1)
Quarter: 2021Q1

REPORT INFORMATION
  Report Type: Spontaneous
  Country: US (occurrence: US)
  Receive Date: 20210312
  Receipt Date: 20210312
  Transmission Date: 20210420
  Serious: No
  Sender: FDA-Public Use
  Company Number: US-GLAXOSMITHKLINE-USCH2021012364

PATIENT
  Sex: Female

DRUGS (7)
  1. ADVIL LIQUI?GELS [Suspect]
     Active Substance: IBUPROFEN
     Indication: NASOPHARYNGITIS
  2. TYLENOL [Suspect]
     Active Substance: ACETAMINOPHEN
     Indication: CHILLS
  3. TYLENOL [Suspect]
     Active Substance: ACETAMINOPHEN
     Indication: FEELING HOT
  4. TYLENOL [Suspect]
     Active Substance: ACETAMINOPHEN
     Indication: FATIGUE
     Dosage: UNK
  5. ADVIL LIQUI?GELS [Suspect]
     Active Substance: IBUPROFEN
     Indication: FEELING HOT
  6. ADVIL LIQUI?GELS [Suspect]
     Active Substance: IBUPROFEN
     Indication: CHILLS
  7. ADVIL LIQUI?GELS [Suspect]
     Active Substance: IBUPROFEN
     Indication: FATIGUE
     Dosage: UNK

REACTIONS (5)
  - Product use issue [Unknown]
  - Fatigue [Unknown]
  - Feeling hot [Unknown]
  - Drug ineffective [Unknown]
  - Chills [Unknown]
